FAERS Safety Report 8941801 (Version 2)
Quarter: 2013Q1

REPORT INFORMATION
  Report Type: Spontaneous
  Country: JP (occurrence: JP)
  Receive Date: 20121203
  Receipt Date: 20130206
  Transmission Date: 20140127
  Serious: Yes (Death, Hospitalization)
  Sender: FDA-Public Use
  Company Number: JP-ELI_LILLY_AND_COMPANY-JP201211006993

PATIENT
  Age: 63 Year
  Sex: Male

DRUGS (2)
  1. GEMZAR [Suspect]
     Indication: PANCREATIC CARCINOMA STAGE IV
     Dosage: 1600 MG, OTHER
     Route: 042
     Dates: start: 20110221, end: 20110228
  2. GEMZAR [Suspect]
     Dosage: 1300 MG, UNK
     Route: 042
     Dates: start: 20110314, end: 20110413

REACTIONS (1)
  - Interstitial lung disease [Recovered/Resolved]
